FAERS Safety Report 16761346 (Version 1)
Quarter: 2019Q3

REPORT INFORMATION
  Report Type: Report from Study
  Country: JP (occurrence: JP)
  Receive Date: 20190830
  Receipt Date: 20190830
  Transmission Date: 20191005
  Serious: Yes (Other)
  Sender: FDA-Public Use
  Company Number: JP-ELI_LILLY_AND_COMPANY-JP201908002653

PATIENT
  Sex: Male
  Weight: 80 kg

DRUGS (7)
  1. HEPARIN [Concomitant]
     Active Substance: HEPARIN SODIUM
     Dosage: 10000 INTERNATIONAL UNIT, UNK
     Route: 065
  2. PRASUGREL HYDROCHLORIDE [Suspect]
     Active Substance: PRASUGREL HYDROCHLORIDE
     Indication: ANGINA UNSTABLE
     Dosage: 20 MG, DAILY
     Route: 065
     Dates: start: 20170501, end: 20170501
  3. BAYASPIRIN [Concomitant]
     Active Substance: ASPIRIN
     Dosage: 100MG/DAY
     Route: 065
     Dates: start: 20170501, end: 20170501
  4. LANSOPRAZOLE. [Concomitant]
     Active Substance: LANSOPRAZOLE
     Dosage: 15MG/DAY
     Route: 065
     Dates: start: 20170501
  5. CLOPIDOGREL ALMUS [CLOPIDOGREL BISULFATE] [Concomitant]
     Dosage: UNK
     Route: 065
  6. BAYASPIRIN [Concomitant]
     Active Substance: ASPIRIN
     Dosage: 100MG/DAY
     Route: 065
  7. CLOPIDOGREL ALMUS [CLOPIDOGREL BISULFATE] [Concomitant]
     Dosage: 75 MG, UNK
     Route: 065
     Dates: start: 20170502

REACTIONS (1)
  - Ischaemic stroke [Not Recovered/Not Resolved]

NARRATIVE: CASE EVENT DATE: 20181021
